FAERS Safety Report 5135097-7 (Version None)
Quarter: 2006Q4

REPORT INFORMATION
  Report Type: 
  Country: None (occurrence: None)
  Receive Date: 20060831
  Receipt Date: 20060526
  Transmission Date: 20070319
  Serious: No
  Sender: FDA-Public Use
  Company Number: 2006-BP-05963BP

PATIENT
  Age: 77 Year
  Sex: Female

DRUGS (4)
  1. SPIRIVA [Suspect]
     Indication: EMPHYSEMA
     Dosage: 18 MCG (18 MCG),IH
     Dates: start: 20060525
  2. ADVAIR (SERETIDE /01420901/) [Concomitant]
  3. THYROID TAB [Concomitant]
  4. K+ [Concomitant]

REACTIONS (1)
  - DIARRHOEA [None]
